FAERS Safety Report 4976844-4 (Version None)
Quarter: 2006Q2

REPORT INFORMATION
  Report Type: 
  Country: None (occurrence: None)
  Receive Date: 20060413
  Receipt Date: 20060331
  Transmission Date: 20061013
  Serious: Yes (Other)
  Sender: FDA-Public Use
  Company Number: 2006045440

PATIENT
  Sex: Male
  Weight: 70.3075 kg

DRUGS (2)
  1. VIAGRA [Suspect]
     Indication: ERECTILE DYSFUNCTION
     Dosage: (50 MG, AS NECESSARY)
  2. LIPITOR [Concomitant]

REACTIONS (6)
  - DIPLOPIA [None]
  - EPIDIDYMAL CYST [None]
  - EROSIVE OESOPHAGITIS [None]
  - VISION BLURRED [None]
  - VISUAL DISTURBANCE [None]
  - WRONG TECHNIQUE IN DRUG USAGE PROCESS [None]
